FAERS Safety Report 11021500 (Version 1)
Quarter: 2015Q2

REPORT INFORMATION
  Report Type: Spontaneous
  Country: US (occurrence: US)
  Receive Date: 20150413
  Receipt Date: 20150413
  Transmission Date: 20150821
  Serious: Yes (Death)
  Sender: FDA-Public Use
  Company Number: US-PFIZER INC-2015122415

PATIENT
  Age: 52 Year
  Sex: Male

DRUGS (1)
  1. GENOTROPIN [Suspect]
     Active Substance: SOMATROPIN

REACTIONS (4)
  - Aortic rupture [Fatal]
  - Myocardial infarction [Fatal]
  - Cardiac tamponade [Fatal]
  - Pericardial haemorrhage [Fatal]

NARRATIVE: CASE EVENT DATE: 20150317
